FAERS Safety Report 26067196 (Version 1)
Quarter: 2025Q4

REPORT INFORMATION
  Report Type: Report from Study
  Country: CA (occurrence: CA)
  Receive Date: 20251119
  Receipt Date: 20251119
  Transmission Date: 20260117
  Serious: Yes (Hospitalization, Other)
  Sender: ABBVIE
  Company Number: CA-ABBVIE-6555057

PATIENT
  Age: 19 Year
  Sex: Female

DRUGS (1)
  1. SKYRIZI [Suspect]
     Active Substance: RISANKIZUMAB-RZAA
     Indication: Crohn^s disease
     Dosage: SOLUTION FOR INJECTION IN PRE-FILLED INJECTOR
     Route: 058

REACTIONS (5)
  - Abdominal pain [Unknown]
  - Ileocaecal resection [Unknown]
  - Gastrointestinal stoma output decreased [Unknown]
  - Vomiting [Unknown]
  - Intestinal obstruction [Unknown]

NARRATIVE: CASE EVENT DATE: 20250128
